FAERS Safety Report 14241878 (Version 6)
Quarter: 2018Q4

REPORT INFORMATION
  Report Type: Report from Study
  Country: GB (occurrence: GB)
  Receive Date: 20171201
  Receipt Date: 20181114
  Transmission Date: 20190204
  Serious: Yes (Other)
  Sender: FDA-Public Use
  Company Number: GB-ROCHE-1958539

PATIENT
  Sex: Female

DRUGS (1)
  1. ROACTEMRA [Suspect]
     Active Substance: TOCILIZUMAB
     Indication: RHEUMATOID ARTHRITIS
     Dosage: RECENT DOSE ON 11/JAN/2016
     Route: 058
     Dates: start: 201511

REACTIONS (16)
  - Feeling hot [Unknown]
  - Hyperhidrosis [Unknown]
  - Rheumatoid arthritis [Unknown]
  - Urinary tract infection [Unknown]
  - Chest pain [Unknown]
  - Infection [Unknown]
  - Tooth fracture [Unknown]
  - Malaise [Unknown]
  - Nephrolithiasis [Unknown]
  - Hiatus hernia [Unknown]
  - Renal disorder [Unknown]
  - Nausea [Unknown]
  - Pain [Unknown]
  - Kidney infection [Unknown]
  - Feeling cold [Unknown]
  - Infection susceptibility increased [Unknown]

NARRATIVE: CASE EVENT DATE: 20160515
